FAERS Safety Report 13850207 (Version 1)
Quarter: 2017Q3

REPORT INFORMATION
  Report Type: Spontaneous
  Country: US (occurrence: US)
  Receive Date: 20170809
  Receipt Date: 20170809
  Transmission Date: 20171127
  Serious: Yes (Life-Threatening, Hospitalization)
  Sender: FDA-Public Use
  Company Number: US-SCIEGEN PHARMACEUTICALS INC-2017SCILIT00514

PATIENT
  Age: 42 Year
  Sex: Male

DRUGS (1)
  1. METFORMIN HYDROCHLORIDE TABLETS, USP [Suspect]
     Active Substance: METFORMIN HYDROCHLORIDE
     Indication: PRODUCT USED FOR UNKNOWN INDICATION
     Dosage: 180 EXTENDED TABLETS OF 1000 MG, UNK
     Route: 065

REACTIONS (3)
  - Intentional overdose [Recovering/Resolving]
  - Lactic acidosis [Recovering/Resolving]
  - Hypotension [Recovering/Resolving]
